FAERS Safety Report 5300588-2 (Version None)
Quarter: 2007Q2

REPORT INFORMATION
  Report Type: 
  Country: None (occurrence: None)
  Receive Date: 20070418
  Receipt Date: 20070413
  Transmission Date: 20071010
  Serious: Yes (Hospitalization)
  Sender: FDA-Public Use
  Company Number: JP-JPN-A200701760

PATIENT
  Age: 44 Year
  Sex: Male

DRUGS (6)
  1. PAXIL [Suspect]
     Indication: DEPRESSION
     Route: 048
     Dates: start: 20060926, end: 20070101
  2. TEGRETOL [Suspect]
     Indication: EPILEPSY
     Route: 048
  3. LENDORMIN [Concomitant]
     Route: 048
  4. DORAL [Concomitant]
     Route: 048
  5. MYSLEE [Concomitant]
     Route: 048
  6. DIAZEPAM [Concomitant]
     Route: 048

REACTIONS (2)
  - EPILEPSY [None]
  - NEUROLEPTIC MALIGNANT SYNDROME [None]
